FAERS Safety Report 12332509 (Version 2)
Quarter: 2016Q2

REPORT INFORMATION
  Report Type: Other
  Country: US (occurrence: US)
  Receive Date: 20160504
  Receipt Date: 20160516
  Transmission Date: 20160815
  Serious: Yes (Hospitalization, Other)
  Sender: FDA-Public Use
  Company Number: US-SHIRE-US201604761

PATIENT
  Age: 69 Year
  Sex: Female

DRUGS (1)
  1. NATPARA (PARATHYROID HORMONE) [Suspect]
     Active Substance: PARATHYROID HORMONE
     Indication: HYPOPARATHYROIDISM
     Dosage: 50 ?G, 1X/DAY:QD
     Route: 058
     Dates: start: 20160216

REACTIONS (3)
  - Nephrolithiasis [Recovered/Resolved]
  - Drug dose omission [Unknown]
  - Blood calcium increased [Recovering/Resolving]

NARRATIVE: CASE EVENT DATE: 20160408
